FAERS Safety Report 7897263-7 (Version None)
Quarter: 2011Q4

REPORT INFORMATION
  Report Type: 
  Country: None (occurrence: None)
  Receive Date: 20111107
  Receipt Date: 20111103
  Transmission Date: 20120403
  Serious: Yes (Other)
  Sender: FDA-Public Use
  Company Number: GR-AMGEN-GRCSP2011057497

PATIENT
  Age: 75 Year
  Sex: Female

DRUGS (2)
  1. VECTIBIX [Suspect]
     Indication: COLON CANCER METASTATIC
     Dosage: UNK
  2. FOLFOX-4 [Concomitant]
     Indication: COLON CANCER METASTATIC

REACTIONS (2)
  - SURGERY [None]
  - SKIN TOXICITY [None]
